FAERS Safety Report 23798227 (Version 2)
Quarter: 2024Q2

REPORT INFORMATION
  Report Type: Other
  Country: CA (occurrence: None)
  Receive Date: 20240430
  Receipt Date: 20240501
  Transmission Date: 20240716
  Serious: Yes (Hospitalization)
  Sender: FDA-Public Use
  Company Number: CA-ROCHE-3549779

PATIENT
  Sex: Male

DRUGS (1)
  1. GAZYVA [Suspect]
     Active Substance: OBINUTUZUMAB
     Indication: Diffuse large B-cell lymphoma
     Dosage: RECEIVED IN HOSPITAL
     Route: 042
     Dates: start: 20240403, end: 20240403

REACTIONS (2)
  - Abscess [Unknown]
  - General physical health deterioration [Unknown]
